FAERS Safety Report 15473710 (Version 2)
Quarter: 2018Q4

REPORT INFORMATION
  Report Type: Spontaneous
  Country: US (occurrence: US)
  Receive Date: 20181008
  Receipt Date: 20181113
  Transmission Date: 20190205
  Serious: No
  Sender: FDA-Public Use
  Company Number: US-GLAXOSMITHKLINE-US2018175935

PATIENT
  Age: 59 Year
  Sex: Female

DRUGS (2)
  1. NICODERM CQ [Suspect]
     Active Substance: NICOTINE
     Indication: SMOKING CESSATION THERAPY
     Dosage: 21 MG, UNK
     Dates: start: 20180923
  2. NICODERM CQ [Suspect]
     Active Substance: NICOTINE
     Dosage: 21 UNK, UNK
     Dates: start: 20180923

REACTIONS (7)
  - Anxiety [Unknown]
  - Nicotine dependence [Unknown]
  - Application site burn [Unknown]
  - Product complaint [Unknown]
  - Application site erythema [Unknown]
  - Product adhesion issue [Unknown]
  - Drug ineffective [Unknown]

NARRATIVE: CASE EVENT DATE: 20180923
